FAERS Safety Report 17159966 (Version 2)
Quarter: 2020Q2

REPORT INFORMATION
  Report Type: Spontaneous
  Country: US (occurrence: US)
  Receive Date: 20191216
  Receipt Date: 20200625
  Transmission Date: 20200713
  Serious: Yes (Other)
  Sender: FDA-Public Use
  Company Number: US-SA-2019SA344889

PATIENT

DRUGS (48)
  1. TAXOTERE [Suspect]
     Active Substance: DOCETAXEL
     Dosage: 130 MG, Q3W
     Route: 042
     Dates: start: 20140429, end: 20140429
  2. DEXAMETHASONE SODIUM PHOSPHATE. [Concomitant]
     Active Substance: DEXAMETHASONE SODIUM PHOSPHATE
     Dosage: 8 MG
     Route: 042
     Dates: start: 20140610, end: 20140610
  3. SODIUM CHLORIDE. [Concomitant]
     Active Substance: SODIUM CHLORIDE
     Dosage: 100 ML
     Route: 042
     Dates: start: 20140610, end: 20140610
  4. PEGFILGRASTIM [Concomitant]
     Active Substance: PEGFILGRASTIM
     Dosage: 6 MG, QD
     Route: 058
     Dates: start: 20140410, end: 20140410
  5. LIPITOR [Concomitant]
     Active Substance: ATORVASTATIN CALCIUM
     Dosage: UNK
     Dates: start: 2000
  6. TAXOTERE [Suspect]
     Active Substance: DOCETAXEL
     Dosage: 130 MG, Q3W
     Route: 042
     Dates: start: 20140610, end: 20140610
  7. CYCLOPHOSPHAMIDE. [Concomitant]
     Active Substance: CYCLOPHOSPHAMIDE
     Dosage: 869 MG
     Route: 042
     Dates: start: 20140429, end: 20140429
  8. CYCLOPHOSPHAMIDE. [Concomitant]
     Active Substance: CYCLOPHOSPHAMIDE
     Dosage: 864 MG
     Dates: start: 20140610, end: 20140610
  9. DOXORUBICIN HCL [Concomitant]
     Active Substance: DOXORUBICIN HYDROCHLORIDE
     Dosage: 98 MG
     Route: 042
     Dates: start: 20140408, end: 20140408
  10. PALONOSETRON HCL [Concomitant]
     Active Substance: PALONOSETRON HYDROCHLORIDE
     Dosage: 0.25 MG
     Route: 042
     Dates: start: 20140610, end: 20140610
  11. SODIUM CHLORIDE. [Concomitant]
     Active Substance: SODIUM CHLORIDE
     Dosage: 100 ML
     Route: 042
     Dates: start: 20140429, end: 20140429
  12. SODIUM CHLORIDE. [Concomitant]
     Active Substance: SODIUM CHLORIDE
     Dosage: 100 ML
     Route: 042
     Dates: start: 20140701, end: 20140701
  13. ONDANSETRON HCL [Concomitant]
     Active Substance: ONDANSETRON HYDROCHLORIDE
     Dosage: 4 MG
     Route: 065
     Dates: start: 20140505, end: 20140505
  14. TAXOTERE [Suspect]
     Active Substance: DOCETAXEL
     Dosage: UNK UNK, Q3W
     Route: 042
     Dates: start: 20141001, end: 20141001
  15. CYCLOPHOSPHAMIDE. [Concomitant]
     Active Substance: CYCLOPHOSPHAMIDE
     Dosage: 864 MG
     Route: 042
     Dates: start: 20140520, end: 20140520
  16. CYCLOPHOSPHAMIDE. [Concomitant]
     Active Substance: CYCLOPHOSPHAMIDE
     Dosage: 860 MG
     Route: 042
     Dates: start: 20140701, end: 20140701
  17. HEPARIN SODIUM. [Concomitant]
     Active Substance: HEPARIN SODIUM
     Dosage: 500 U
     Dates: start: 20140408, end: 20140408
  18. HEPARIN SODIUM. [Concomitant]
     Active Substance: HEPARIN SODIUM
     Dosage: 500 U
     Route: 065
     Dates: start: 20140415, end: 20140415
  19. HEPARIN SODIUM. [Concomitant]
     Active Substance: HEPARIN SODIUM
     Dosage: 500 U
     Route: 065
     Dates: start: 20140418, end: 20140418
  20. HEPARIN SODIUM. [Concomitant]
     Active Substance: HEPARIN SODIUM
     Dosage: 500 U
     Route: 065
     Dates: start: 20140505, end: 20140505
  21. PEGFILGRASTIM [Concomitant]
     Active Substance: PEGFILGRASTIM
     Dosage: 6 MG, QD
     Route: 058
     Dates: start: 20140501, end: 20140501
  22. PEGFILGRASTIM [Concomitant]
     Active Substance: PEGFILGRASTIM
     Dosage: 8 MG, QD
     Route: 058
     Dates: start: 20140522, end: 20140522
  23. DOXORUBICIN HCL [Concomitant]
     Active Substance: DOXORUBICIN HYDROCHLORIDE
     Dosage: 86 MG
     Route: 042
     Dates: start: 20140610, end: 20140610
  24. DOXORUBICIN HCL [Concomitant]
     Active Substance: DOXORUBICIN HYDROCHLORIDE
     Dosage: 86 MG
     Route: 042
     Dates: start: 20140701, end: 20140701
  25. PALONOSETRON HCL [Concomitant]
     Active Substance: PALONOSETRON HYDROCHLORIDE
     Dosage: 0.25 MG
     Route: 042
     Dates: start: 20140408, end: 20140408
  26. SODIUM CHLORIDE. [Concomitant]
     Active Substance: SODIUM CHLORIDE
     Dosage: 100 ML
     Route: 042
     Dates: start: 20140408, end: 20140408
  27. ONDANSETRON HCL [Concomitant]
     Active Substance: ONDANSETRON HYDROCHLORIDE
     Dosage: 8 MG
     Route: 065
     Dates: start: 20140415, end: 20140415
  28. TAXOTERE [Suspect]
     Active Substance: DOCETAXEL
     Indication: BREAST CANCER FEMALE
     Dosage: 146 MG, Q3W
     Route: 042
     Dates: start: 20140408, end: 20140408
  29. TAXOTERE [Suspect]
     Active Substance: DOCETAXEL
     Dosage: 131 MG, Q3W
     Route: 042
     Dates: start: 20140520, end: 20140520
  30. CYCLOPHOSPHAMIDE. [Concomitant]
     Active Substance: CYCLOPHOSPHAMIDE
     Dosage: 975 MG
     Route: 042
     Dates: start: 20140408
  31. HEPARIN SODIUM. [Concomitant]
     Active Substance: HEPARIN SODIUM
     Dosage: 500 U
     Route: 065
     Dates: start: 20140429, end: 20140429
  32. HEPARIN SODIUM. [Concomitant]
     Active Substance: HEPARIN SODIUM
     Dosage: 500 U
     Route: 065
     Dates: start: 20140520, end: 20140520
  33. DEXAMETHASONE SODIUM PHOSPHATE. [Concomitant]
     Active Substance: DEXAMETHASONE SODIUM PHOSPHATE
     Dosage: 4 MG
     Route: 042
     Dates: start: 20140505, end: 20140505
  34. DEXAMETHASONE SODIUM PHOSPHATE. [Concomitant]
     Active Substance: DEXAMETHASONE SODIUM PHOSPHATE
     Dosage: 8 MG
     Route: 042
     Dates: start: 20140520, end: 20140520
  35. ONDANSETRON HCL [Concomitant]
     Active Substance: ONDANSETRON HYDROCHLORIDE
     Dosage: 4 MG
     Route: 065
     Dates: start: 20140418, end: 20140418
  36. HEPARIN SODIUM. [Concomitant]
     Active Substance: HEPARIN SODIUM
     Dosage: 500 U
     Route: 042
     Dates: start: 20140701, end: 20140701
  37. DEXAMETHASONE SODIUM PHOSPHATE. [Concomitant]
     Active Substance: DEXAMETHASONE SODIUM PHOSPHATE
     Dosage: 8 MG
     Route: 042
     Dates: start: 20140701, end: 20140701
  38. PALONOSETRON HCL [Concomitant]
     Active Substance: PALONOSETRON HYDROCHLORIDE
     Dosage: 0.25 MG
     Route: 042
     Dates: start: 20140429, end: 20140429
  39. HEPARIN SODIUM. [Concomitant]
     Active Substance: HEPARIN SODIUM
     Dosage: 500 U
     Route: 065
     Dates: start: 20140610, end: 20140610
  40. DOXORUBICIN HCL [Concomitant]
     Active Substance: DOXORUBICIN HYDROCHLORIDE
     Dosage: 86 MG
     Route: 042
     Dates: start: 20140520, end: 20140520
  41. DEXAMETHASONE SODIUM PHOSPHATE. [Concomitant]
     Active Substance: DEXAMETHASONE SODIUM PHOSPHATE
     Dosage: UNK
     Route: 065
     Dates: start: 20140415, end: 20140415
  42. PALONOSETRON HCL [Concomitant]
     Active Substance: PALONOSETRON HYDROCHLORIDE
     Dosage: 0.25 MG
     Route: 042
     Dates: start: 20140520, end: 20140520
  43. PALONOSETRON HCL [Concomitant]
     Active Substance: PALONOSETRON HYDROCHLORIDE
     Dosage: 0.25 MG
     Route: 042
     Dates: start: 20140701, end: 20140701
  44. TAXOTERE [Suspect]
     Active Substance: DOCETAXEL
     Dosage: 129 MG, Q3W
     Route: 042
     Dates: start: 20140701, end: 20140701
  45. DOXORUBICIN HCL [Concomitant]
     Active Substance: DOXORUBICIN HYDROCHLORIDE
     Dosage: 87 MG
     Route: 042
     Dates: start: 20140429, end: 20140429
  46. DEXAMETHASONE SODIUM PHOSPHATE. [Concomitant]
     Active Substance: DEXAMETHASONE SODIUM PHOSPHATE
     Dosage: 8 MG
     Route: 042
     Dates: start: 20140408, end: 20140408
  47. SODIUM CHLORIDE. [Concomitant]
     Active Substance: SODIUM CHLORIDE
     Dosage: 100 ML
     Route: 042
     Dates: start: 20140520, end: 20140520
  48. PEGFILGRASTIM [Concomitant]
     Active Substance: PEGFILGRASTIM
     Dosage: 6 MG
     Route: 058
     Dates: start: 20140612, end: 20140612

REACTIONS (2)
  - Emotional distress [Unknown]
  - Alopecia [Not Recovered/Not Resolved]

NARRATIVE: CASE EVENT DATE: 2014
